FAERS Safety Report 11360918 (Version 2)
Quarter: 2015Q4

REPORT INFORMATION
  Report Type: Report from Study
  Country: JP (occurrence: JP)
  Receive Date: 20150810
  Receipt Date: 20151111
  Transmission Date: 20160304
  Serious: Yes (Other)
  Sender: FDA-Public Use
  Company Number: JP-OTSUKA-2015_006837

PATIENT

DRUGS (7)
  1. RENIVACE [Concomitant]
     Active Substance: ENALAPRIL
     Indication: CARDIAC FAILURE
     Dosage: 5 MG, DAILY DOSE
     Route: 048
  2. FUROSEMIDE. [Concomitant]
     Active Substance: FUROSEMIDE
     Indication: CARDIAC FAILURE
     Dosage: 40 MG, DAILY DOSE
     Route: 048
  3. WARFARIN POTASSIUM [Concomitant]
     Active Substance: WARFARIN POTASSIUM
     Indication: CARDIAC FAILURE
     Dosage: 1.5 MG, DAILY DOSE
     Route: 048
  4. AVOLVE [Concomitant]
     Active Substance: DUTASTERIDE
     Indication: PRODUCT USED FOR UNKNOWN INDICATION
     Dosage: 0.5 MG, DAILY DOSE
     Route: 048
     Dates: start: 20140409
  5. TOLVAPTAN [Suspect]
     Active Substance: TOLVAPTAN
     Indication: FLUID RETENTION
     Dosage: 3.75 MG, QD (IN THE MORNING)
     Route: 048
     Dates: start: 20140410, end: 20140411
  6. MAGMITT [Concomitant]
     Active Substance: MAGNESIUM OXIDE
     Indication: PROPHYLAXIS
     Dosage: 1500 MG, DAILY DOSE
     Route: 048
     Dates: start: 20140411
  7. LUPRAC [Concomitant]
     Active Substance: TORSEMIDE
     Indication: CARDIAC FAILURE
     Dosage: 4 MG, DAILY DOSE
     Route: 048
     Dates: start: 20140411

REACTIONS (1)
  - Cardiac failure [Recovering/Resolving]

NARRATIVE: CASE EVENT DATE: 20140610
